FAERS Safety Report 23877938 (Version 1)
Quarter: 2024Q2

REPORT INFORMATION
  Report Type: Spontaneous
  Country: ZA (occurrence: None)
  Receive Date: 20240521
  Receipt Date: 20240521
  Transmission Date: 20240716
  Serious: Yes (Death)
  Sender: FDA-Public Use
  Company Number: 2024A115320

PATIENT
  Age: 69 Year
  Sex: Male

DRUGS (28)
  1. BUDESONIDE\FORMOTEROL [Suspect]
     Active Substance: BUDESONIDE\FORMOTEROL
     Indication: Asthma
     Dosage: 160/4.5 UG, TWO TIMES A DAY
     Route: 055
  2. NEPIZEL [Concomitant]
     Indication: Dementia Alzheimer^s type
     Route: 048
  3. ASPIRIN\CLOPIDOGREL BISULFATE [Concomitant]
     Active Substance: ASPIRIN\CLOPIDOGREL BISULFATE
     Indication: Anticoagulant therapy
     Route: 048
  4. LIPOGEN [Concomitant]
     Indication: Blood cholesterol
     Route: 048
  5. PREGABALIN [Concomitant]
     Active Substance: PREGABALIN
     Indication: Pain
     Route: 048
  6. TRAMAZAC [Concomitant]
     Indication: Pain
     Route: 048
  7. ALLOPURINOL [Concomitant]
     Active Substance: ALLOPURINOL
     Indication: Gout
     Route: 048
  8. PREXUM 10 PLUS [Concomitant]
     Indication: Hypertension
     Route: 048
  9. ZOLPIDEM TARTRATE [Concomitant]
     Active Substance: ZOLPIDEM TARTRATE
     Indication: Insomnia
     Route: 048
  10. DUTASTERIDE\TAMSULOSIN HYDROCHLORIDE [Concomitant]
     Active Substance: DUTASTERIDE\TAMSULOSIN HYDROCHLORIDE
  11. DYNAPAYNE [Concomitant]
  12. LACTULOSE [Concomitant]
     Active Substance: LACTULOSE
  13. ATIVAN [Concomitant]
     Active Substance: LORAZEPAM
  14. VALPROIC ACID [Concomitant]
     Active Substance: VALPROIC ACID
  15. MYPAID FORTE [Concomitant]
     Active Substance: ACETAMINOPHEN\IBUPROFEN
  16. SOLPHYLLEX [Concomitant]
  17. LESSMUSEC [Concomitant]
  18. RIVOTRIL [Concomitant]
     Active Substance: CLONAZEPAM
  19. NAFASOL [Concomitant]
  20. QUETIAPINE [Concomitant]
     Active Substance: QUETIAPINE
  21. IBUGESIC FORTE [Concomitant]
  22. UROMAX [Concomitant]
  23. LAMOTRIGINE [Concomitant]
     Active Substance: LAMOTRIGINE
  24. VALPROATE SODIUM [Concomitant]
     Active Substance: VALPROATE SODIUM
  25. SERTRALINE HYDROCHLORIDE [Concomitant]
     Active Substance: SERTRALINE HYDROCHLORIDE
  26. LORAZEPAM [Concomitant]
     Active Substance: LORAZEPAM
  27. AMIODARONE [Concomitant]
     Active Substance: AMIODARONE
  28. OMIFLUX [Concomitant]

REACTIONS (1)
  - Death [Fatal]

NARRATIVE: CASE EVENT DATE: 20240501
